FAERS Safety Report 4536515-5 (Version None)
Quarter: 2004Q4

REPORT INFORMATION
  Report Type: 
  Country: None (occurrence: None)
  Receive Date: 20041223
  Receipt Date: 20041214
  Transmission Date: 20050328
  Serious: Yes (Death, Hospitalization)
  Sender: FDA-Public Use
  Company Number: US-JNJFOC-20041204427

PATIENT
  Age: 56 Year
  Sex: Male

DRUGS (5)
  1. INFLIXIMAB [Suspect]
     Indication: GRAFT VERSUS HOST DISEASE
     Route: 042
  2. PREDNISONE [Concomitant]
  3. CYCLOSPORINE [Concomitant]
  4. MYCOPHENOLATE MOFETIL [Concomitant]
  5. METHYLPREDNISOLONE [Concomitant]

REACTIONS (10)
  - BLOOD CULTURE POSITIVE [None]
  - BURSITIS [None]
  - HYPERBILIRUBINAEMIA [None]
  - HYPERGLYCAEMIA [None]
  - INFECTION [None]
  - KLEBSIELLA BACTERAEMIA [None]
  - LETHARGY [None]
  - MULTI-ORGAN FAILURE [None]
  - RASH PAPULAR [None]
  - SKIN LESION [None]
